FAERS Safety Report 22288981 (Version 2)
Quarter: 2023Q2

REPORT INFORMATION
  Report Type: Spontaneous
  Country: FI (occurrence: FI)
  Receive Date: 20230505
  Receipt Date: 20230525
  Transmission Date: 20230722
  Serious: Yes (Hospitalization)
  Sender: FDA-Public Use
  Company Number: FI-ELI_LILLY_AND_COMPANY-FI202304012482

PATIENT
  Age: 31 Year
  Sex: Male

DRUGS (6)
  1. ZYPADHERA [Suspect]
     Active Substance: OLANZAPINE PAMOATE
     Indication: Schizophrenia
     Dosage: 405 MG, MONTHLY (1/M) (4 WEEKS)
     Route: 030
     Dates: start: 202207
  2. ZYPADHERA [Suspect]
     Active Substance: OLANZAPINE PAMOATE
     Indication: Schizophrenia
     Dosage: 405 MG, MONTHLY (1/M) (4 WEEKS)
     Route: 030
     Dates: start: 202207
  3. ZYPADHERA [Suspect]
     Active Substance: OLANZAPINE PAMOATE
     Indication: Schizophrenia
     Dosage: 405 MG, MONTHLY (1/M) (4 WEEKS)
     Route: 030
     Dates: start: 202207
  4. OLANZAPINE [Concomitant]
     Active Substance: OLANZAPINE
     Indication: Schizophrenia
     Dosage: UNK UNK, UNKNOWN
     Route: 048
  5. MIRTAZAPINE [Concomitant]
     Active Substance: MIRTAZAPINE
     Indication: Product used for unknown indication
  6. VENLAFAXINE [Concomitant]
     Active Substance: VENLAFAXINE HYDROCHLORIDE
     Indication: Product used for unknown indication

REACTIONS (17)
  - Drooling [Unknown]
  - Tremor [Unknown]
  - Muscle twitching [Unknown]
  - Gait disturbance [Unknown]
  - Heart rate increased [Unknown]
  - Depressed level of consciousness [Unknown]
  - Tachycardia [Unknown]
  - Dizziness [Unknown]
  - Confusional state [Unknown]
  - Restlessness [Unknown]
  - Disorientation [Unknown]
  - Delirium [Unknown]
  - Sedation [Unknown]
  - Post-injection delirium sedation syndrome [Unknown]
  - White blood cell count increased [Unknown]
  - Alanine aminotransferase increased [Unknown]
  - Overdose [Unknown]

NARRATIVE: CASE EVENT DATE: 20230329
